FAERS Safety Report 5764970-1 (Version None)
Quarter: 2008Q2

REPORT INFORMATION
  Report Type: 
  Country: None (occurrence: None)
  Receive Date: 20080611
  Receipt Date: 20080609
  Transmission Date: 20081010
  Serious: Yes (Other)
  Sender: FDA-Public Use
  Company Number: B0524307A

PATIENT
  Age: 39 Year
  Sex: Male

DRUGS (1)
  1. SAWACILLIN [Suspect]
     Route: 048
     Dates: start: 20080528, end: 20080530

REACTIONS (3)
  - BLOOD CREATINE PHOSPHOKINASE INCREASED [None]
  - MYALGIA [None]
  - RHABDOMYOLYSIS [None]
